FAERS Safety Report 6975598-X (Version None)
Quarter: 2010Q3

REPORT INFORMATION
  Report Type: 
  Country: None (occurrence: None)
  Receive Date: 20100908
  Receipt Date: 20100826
  Transmission Date: 20110219
  Serious: Yes (Hospitalization)
  Sender: FDA-Public Use
  Company Number: 2010-2341

PATIENT
  Age: 70 Year
  Sex: Male
  Weight: 73.5 kg

DRUGS (6)
  1. SOMATULINE DEPOT [Suspect]
     Indication: CARCINOID TUMOUR
     Dosage: (120 MG, 1 IN 2 WK), SUBCUTANEOUS
     Route: 058
     Dates: start: 20100626
  2. ZOCOR [Concomitant]
  3. LISINOPRIL [Concomitant]
  4. BISOPROLOL FUMARATE [Concomitant]
  5. AXID [Concomitant]
  6. MULTI-VITAMINS [Concomitant]

REACTIONS (5)
  - APHAGIA [None]
  - BACTERIAL TEST POSITIVE [None]
  - BLOOD PRESSURE DECREASED [None]
  - GASTROENTERITIS VIRAL [None]
  - LIVER DISORDER [None]
